FAERS Safety Report 5815999-6 (Version None)
Quarter: 2008Q3

REPORT INFORMATION
  Report Type: 
  Country: None (occurrence: None)
  Receive Date: 20080721
  Receipt Date: 20080712
  Transmission Date: 20090109
  Serious: Yes (Hospitalization)
  Sender: FDA-Public Use
  Company Number: PHHY2008DE14253

PATIENT
  Age: 4 Year
  Sex: Male

DRUGS (2)
  1. TRILEPTAL [Suspect]
     Indication: EPILEPSY
     Dosage: 8 ML (480 MG), BID
     Route: 048
  2. TRILEPTAL [Suspect]
     Dosage: 480 MG, ONCE/SINGLE
     Route: 048
     Dates: start: 20080712

REACTIONS (2)
  - FATIGUE [None]
  - INAPPROPRIATE SCHEDULE OF DRUG ADMINISTRATION [None]
